FAERS Safety Report 22130226 (Version 2)
Quarter: 2023Q1

REPORT INFORMATION
  Report Type: Spontaneous
  Country: CN (occurrence: CN)
  Receive Date: 20230323
  Receipt Date: 20230330
  Transmission Date: 20230418
  Serious: Yes (Life-Threatening, Hospitalization, Other)
  Sender: FDA-Public Use
  Company Number: CN-MLMSERVICE-20230314-4164337-1

PATIENT
  Age: 61 Year
  Sex: Female

DRUGS (2)
  1. METHYLPREDNISOLONE [Suspect]
     Active Substance: METHYLPREDNISOLONE
     Indication: Hypersensitivity vasculitis
     Dosage: 2 MG, 2X/DAY (FREQ:12 H)
     Dates: end: 2020
  2. METHYLPREDNISOLONE [Suspect]
     Active Substance: METHYLPREDNISOLONE
     Indication: Rheumatoid arthritis
     Dosage: 16 MG, 2X/DAY (FREQ:12 H)
     Dates: start: 2020, end: 2022

REACTIONS (8)
  - Bronchopulmonary aspergillosis [Recovering/Resolving]
  - Pulmonary nocardiosis [Recovering/Resolving]
  - Epilepsy [Recovered/Resolved]
  - Burkholderia cepacia complex infection [Recovering/Resolving]
  - Cerebral nocardiosis [Recovering/Resolving]
  - Cytomegalovirus infection [Recovering/Resolving]
  - Respiratory syncytial virus infection [Recovering/Resolving]
  - Staphylococcal infection [Recovering/Resolving]

NARRATIVE: CASE EVENT DATE: 20211201
